FAERS Safety Report 23135287 (Version 4)
Quarter: 2024Q1

REPORT INFORMATION
  Report Type: Spontaneous
  Country: DE (occurrence: DE)
  Receive Date: 20231101
  Receipt Date: 20240119
  Transmission Date: 20240410
  Serious: Yes (Hospitalization, Other)
  Sender: FDA-Public Use
  Company Number: DE-002147023-NVSC2023DE221976

PATIENT
  Age: 72 Year
  Sex: Female

DRUGS (4)
  1. KESIMPTA [Suspect]
     Active Substance: OFATUMUMAB
     Indication: Multiple sclerosis
     Dosage: 20 MG
     Route: 058
     Dates: start: 20230818, end: 20230818
  2. LAMOTRIGINE [Concomitant]
     Active Substance: LAMOTRIGINE
     Indication: Epilepsy
     Dosage: 200 MG, BID, (1-1-0)
     Route: 048
  3. GALANTAMINE [Concomitant]
     Active Substance: GALANTAMINE
     Indication: Memory impairment
     Dosage: 8 MG, QD, (1-0-0)
     Route: 048
  4. GALANTAMINE [Concomitant]
     Active Substance: GALANTAMINE
     Indication: Dementia

REACTIONS (3)
  - Loss of consciousness [Recovered/Resolved]
  - Malaise [Recovered/Resolved]
  - Infection [Recovered/Resolved]

NARRATIVE: CASE EVENT DATE: 20230818
